FAERS Safety Report 4846543-8 (Version None)
Quarter: 2005Q4

REPORT INFORMATION
  Report Type: 
  Country: None (occurrence: None)
  Receive Date: 20051202
  Receipt Date: 20051118
  Transmission Date: 20060501
  Serious: Yes (Death, Other)
  Sender: FDA-Public Use
  Company Number: KII-2005-0019831

PATIENT
  Age: 67 Year
  Sex: Female

DRUGS (5)
  1. MORPHINE SULFATE [Suspect]
     Indication: ARTHRITIS
     Dosage: INTRAVENOUS
     Route: 042
  2. HYDROCODONE BITARTRATE [Suspect]
     Indication: ARTHRITIS
     Dosage: ORAL
     Route: 048
  3. SSRI [Suspect]
  4. BENZODIAZEPINE DERIVATIVES [Suspect]
  5. TRAZODONE HCL [Suspect]

REACTIONS (11)
  - CARDIAC DISORDER [None]
  - COMA [None]
  - DRUG INEFFECTIVE [None]
  - HEART RATE INCREASED [None]
  - HYPOTENSION [None]
  - MULTIPLE DRUG OVERDOSE [None]
  - OXYGEN SATURATION DECREASED [None]
  - PO2 INCREASED [None]
  - RESPIRATORY ACIDOSIS [None]
  - RESPIRATORY DEPRESSION [None]
  - SUICIDE ATTEMPT [None]
